FAERS Safety Report 14814474 (Version 2)
Quarter: 2018Q2

REPORT INFORMATION
  Report Type: Spontaneous
  Country: EG (occurrence: EG)
  Receive Date: 20180426
  Receipt Date: 20180620
  Transmission Date: 20180711
  Serious: Yes (Hospitalization, Other)
  Sender: FDA-Public Use
  Company Number: EG-NOVOPROD-596672

PATIENT
  Age: 47 Year
  Sex: Female
  Weight: 105 kg

DRUGS (4)
  1. SINOPRIL                           /00894001/ [Concomitant]
     Indication: HYPERTENSION
     Dosage: 1 MORNING TABLET/DAY ,  FROM 5 YEARS .
     Route: 048
  2. ASPRIN [Concomitant]
     Active Substance: ASPIRIN
     Indication: CORONARY ARTERY INSUFFICIENCY
     Dosage: 1/DAY ,  FROM 5 YEARS
     Route: 048
  3. CONCOR 5 PLUS [Concomitant]
     Indication: CORONARY ARTERY INSUFFICIENCY
     Dosage: 1/DAY ,  FROM 5 YEARS .
     Route: 048
  4. MIXTARD 30 HM PENFILL [Suspect]
     Active Substance: INSULIN HUMAN
     Indication: TYPE 2 DIABETES MELLITUS
     Dosage: 80 U, QD (50 U MORNING , 30 U NIGHT)
     Route: 058

REACTIONS (1)
  - Peripheral artery occlusion [Not Recovered/Not Resolved]
